FAERS Safety Report 15695334 (Version 31)
Quarter: 2021Q1

REPORT INFORMATION
  Report Type: Spontaneous
  Country: CA (occurrence: CA)
  Receive Date: 20181206
  Receipt Date: 20210326
  Transmission Date: 20210419
  Serious: Yes (Other)
  Sender: FDA-Public Use
  Company Number: CA-CELLTRION INC.-2018CA024412

PATIENT

DRUGS (42)
  1. INFLECTRA [Suspect]
     Active Substance: INFLIXIMAB-DYYB
     Dosage: 300 MG, AT 0,2,6 WEEKS AND THEN EVERY 4 WEEKS
     Route: 042
     Dates: start: 20190204
  2. INFLECTRA [Suspect]
     Active Substance: INFLIXIMAB-DYYB
     Dosage: 300 MG, AT 0,2,6 WEEKS AND THEN EVERY 4 WEEKS
     Route: 042
     Dates: start: 20190304
  3. INFLECTRA [Suspect]
     Active Substance: INFLIXIMAB-DYYB
     Dosage: 300 MG, AT 0,2,6 WEEKS AND THEN EVERY 4 WEEKS
     Route: 042
     Dates: start: 20190916
  4. INFLECTRA [Suspect]
     Active Substance: INFLIXIMAB-DYYB
     Dosage: 300 MG, AT 0, 2, 6 WEEKS AND THEN EVERY 4 WEEKS
     Route: 042
     Dates: start: 20210119
  5. ENTOCORT [Concomitant]
     Active Substance: BUDESONIDE
     Dosage: MORNING
     Route: 054
  6. PENTASA [Concomitant]
     Active Substance: MESALAMINE
     Dosage: 1 DF, DAILY (IN THE EVENING)
     Route: 054
  7. INFLECTRA [Suspect]
     Active Substance: INFLIXIMAB-DYYB
     Dosage: 300 MG, AT 0,2,6 WEEKS AND THEN EVERY 4 WEEKS
     Route: 042
     Dates: start: 20190107
  8. INFLECTRA [Suspect]
     Active Substance: INFLIXIMAB-DYYB
     Dosage: 300 MG, AT 0,2,6 WEEKS AND THEN EVERY 4 WEEKS
     Route: 042
     Dates: start: 20190429
  9. INFLECTRA [Suspect]
     Active Substance: INFLIXIMAB-DYYB
     Dosage: 300 MG, AT 0,2,6 WEEKS AND THEN EVERY 4 WEEKS
     Route: 042
     Dates: start: 20190626
  10. INFLECTRA [Suspect]
     Active Substance: INFLIXIMAB-DYYB
     Dosage: 300 MG, AT 0, 2, 6 WEEKS AND THEN EVERY 4 WEEKS
     Route: 042
     Dates: start: 20191212
  11. INFLECTRA [Suspect]
     Active Substance: INFLIXIMAB-DYYB
     Dosage: 300 MG, AT 0, 2, 6 WEEKS AND THEN EVERY 4 WEEKS
     Route: 042
     Dates: start: 20201222
  12. INFLECTRA [Suspect]
     Active Substance: INFLIXIMAB-DYYB
     Indication: CROHN^S DISEASE
     Dosage: 300 MG, AT 0,2,6 WEEKS AND THEN EVERY 4 WEEKS
     Route: 042
     Dates: start: 20181126
  13. INFLECTRA [Suspect]
     Active Substance: INFLIXIMAB-DYYB
     Dosage: 300 MG, AT 0,2,6 WEEKS AND THEN EVERY 4 WEEKS
     Route: 042
     Dates: start: 20190527
  14. INFLECTRA [Suspect]
     Active Substance: INFLIXIMAB-DYYB
     Dosage: 300 MG, AT 0,2,6 WEEKS AND THEN EVERY 4 WEEKS
     Route: 042
     Dates: start: 20190819
  15. INFLECTRA [Suspect]
     Active Substance: INFLIXIMAB-DYYB
     Dosage: 300 MG, AT 0, 2, 6 WEEKS AND THEN EVERY 4 WEEKS
     Route: 042
     Dates: start: 20200206
  16. INFLECTRA [Suspect]
     Active Substance: INFLIXIMAB-DYYB
     Dosage: 300 MG, AT 0, 2, 6 WEEKS AND THEN EVERY 4 WEEKS
     Route: 042
     Dates: start: 20200406
  17. INFLECTRA [Suspect]
     Active Substance: INFLIXIMAB-DYYB
     Dosage: 300 MG, AT 0, 2, 6 WEEKS AND THEN EVERY 4 WEEKS
     Route: 042
     Dates: start: 20201027
  18. PREDNISONE. [Concomitant]
     Active Substance: PREDNISONE
     Dosage: 20 MG, (TAPERING BY 2.5 A WEEK UNTIL COMPLETELY OFF)
  19. INFLECTRA [Suspect]
     Active Substance: INFLIXIMAB-DYYB
     Dosage: 300 MG, AT 0,2,6 WEEKS AND THEN EVERY 4 WEEKS
     Route: 042
     Dates: start: 20181207
  20. INFLECTRA [Suspect]
     Active Substance: INFLIXIMAB-DYYB
     Dosage: 300 MG, AT 0, 2, 6 WEEKS AND THEN EVERY 4 WEEKS
     Route: 042
     Dates: start: 20191015
  21. INFLECTRA [Suspect]
     Active Substance: INFLIXIMAB-DYYB
     Dosage: 300 MG, AT 0, 2, 6 WEEKS AND THEN EVERY 4 WEEKS
     Route: 042
     Dates: start: 20200508
  22. MIDAZOLAM. [Concomitant]
     Active Substance: MIDAZOLAM
     Indication: SEDATION
     Dosage: 3 MG
     Route: 042
     Dates: start: 20190212
  23. INFLECTRA [Suspect]
     Active Substance: INFLIXIMAB-DYYB
     Dosage: 300 MG, AT 0, 2, 6 WEEKS AND THEN EVERY 4 WEEKS
     Route: 042
     Dates: start: 20191113
  24. INFLECTRA [Suspect]
     Active Substance: INFLIXIMAB-DYYB
     Dosage: 300 MG, AT 0, 2, 6 WEEKS AND THEN EVERY 4 WEEKS
     Route: 042
     Dates: start: 20200309
  25. VITAMINE D [Concomitant]
     Active Substance: CHOLECALCIFEROL
     Dosage: 3000 IU, DAILY
     Route: 065
  26. INFLECTRA [Suspect]
     Active Substance: INFLIXIMAB-DYYB
     Indication: COLITIS ULCERATIVE
     Dosage: 300 MG, AT 0,2,6 WEEKS AND THEN EVERY 4 WEEKS
     Route: 042
     Dates: start: 20181115
  27. INFLECTRA [Suspect]
     Active Substance: INFLIXIMAB-DYYB
     Dosage: 300 MG, AT 0,2,6 WEEKS AND THEN EVERY 4 WEEKS
     Route: 042
     Dates: start: 20190722
  28. INFLECTRA [Suspect]
     Active Substance: INFLIXIMAB-DYYB
     Dosage: 300 MG, AT 0, 2, 6 WEEKS AND THEN EVERY 4 WEEKS
     Route: 042
     Dates: start: 20200929
  29. INFLECTRA [Suspect]
     Active Substance: INFLIXIMAB-DYYB
     Dosage: 300 MG, AT 0, 2, 6 WEEKS AND THEN EVERY 4 WEEKS
     Route: 042
     Dates: start: 20210217
  30. AZATHIOPRINE. [Concomitant]
     Active Substance: AZATHIOPRINE
     Dosage: 1.5 MG, DAILY
     Route: 065
     Dates: start: 2019
  31. PREDNISONE. [Concomitant]
     Active Substance: PREDNISONE
     Dosage: 20 MG, (TAPERING BY 5 MG UNTIL OFF)
     Route: 065
     Dates: start: 20190118
  32. INFLECTRA [Suspect]
     Active Substance: INFLIXIMAB-DYYB
     Dosage: 300 MG, AT 0,2,6 WEEKS AND THEN EVERY 4 WEEKS
     Route: 042
     Dates: start: 20181207
  33. INFLECTRA [Suspect]
     Active Substance: INFLIXIMAB-DYYB
     Dosage: 300 MG, AT 0,2,6 WEEKS AND THEN EVERY 4 WEEKS
     Route: 042
     Dates: start: 20190107
  34. AZATHIOPRINE. [Concomitant]
     Active Substance: AZATHIOPRINE
     Dosage: 1.5 MG, DAILY
     Route: 065
  35. VITAMIN B12 [Concomitant]
     Active Substance: CYANOCOBALAMIN
     Dosage: 1000 UG, DAILY
     Route: 054
  36. INFLECTRA [Suspect]
     Active Substance: INFLIXIMAB-DYYB
     Dosage: 300 MG, AT 0, 2, 6 WEEKS AND THEN EVERY 4 WEEKS
     Route: 042
     Dates: start: 20200108
  37. INFLECTRA [Suspect]
     Active Substance: INFLIXIMAB-DYYB
     Dosage: 300 MG, AT 0, 2, 6 WEEKS AND THEN EVERY 4 WEEKS
     Route: 042
     Dates: start: 20200707
  38. INFLECTRA [Suspect]
     Active Substance: INFLIXIMAB-DYYB
     Dosage: 300 MG, AT 0, 2, 6 WEEKS AND THEN EVERY 4 WEEKS
     Route: 042
     Dates: start: 20201124
  39. INFLECTRA [Suspect]
     Active Substance: INFLIXIMAB-DYYB
     Dosage: 300 MG, AT 0, 2, 6 WEEKS AND THEN EVERY 4 WEEKS
     Route: 042
     Dates: start: 20210316
  40. MEZAVANT [Concomitant]
     Active Substance: MESALAMINE
     Dosage: 4.8 G, DAILY (4X 1.2 G TABS DAILY)
     Route: 065
  41. PREDNISONE. [Concomitant]
     Active Substance: PREDNISONE
     Dosage: 40 MG, TAPERING BY 5 MG UNTIL AT 20 MG
  42. FENTANYL. [Concomitant]
     Active Substance: FENTANYL
     Indication: SEDATION
     Dosage: 50 UG
     Route: 042
     Dates: start: 20190212

REACTIONS (21)
  - Weight increased [Unknown]
  - Condition aggravated [Recovering/Resolving]
  - Heart rate increased [Unknown]
  - Muscular weakness [Not Recovered/Not Resolved]
  - Off label use [Unknown]
  - Therapeutic response shortened [Unknown]
  - Off label use [Unknown]
  - Abdominal distension [Unknown]
  - Drug ineffective [Unknown]
  - Blood pressure increased [Unknown]
  - Infusion site pain [Unknown]
  - Oropharyngeal pain [Recovering/Resolving]
  - Pelvic pain [Unknown]
  - Rectal polyp [Unknown]
  - Product use issue [Unknown]
  - Pseudopolyposis [Unknown]
  - Drug level above therapeutic [Unknown]
  - Fatigue [Recovering/Resolving]
  - Intentional product use issue [Unknown]
  - Nasal congestion [Unknown]
  - Haemorrhoids [Unknown]

NARRATIVE: CASE EVENT DATE: 20181115
